FAERS Safety Report 23137371 (Version 1)
Quarter: 2023Q4

REPORT INFORMATION
  Report Type: Spontaneous
  Country: US (occurrence: None)
  Receive Date: 20231102
  Receipt Date: 20231102
  Transmission Date: 20240109
  Serious: Yes (Other)
  Sender: FDA-Public Use
  Company Number: US-ROCHE-3449055

PATIENT

DRUGS (3)
  1. ACTIVASE [Suspect]
     Active Substance: ALTEPLASE
     Indication: Product used for unknown indication
     Route: 065
  2. ACTIVASE [Suspect]
     Active Substance: ALTEPLASE
  3. LECANEMAB [Suspect]
     Active Substance: LECANEMAB
     Indication: Product used for unknown indication
     Route: 065

REACTIONS (2)
  - Cerebral artery occlusion [Unknown]
  - Cerebral haemorrhage [Unknown]
